FAERS Safety Report 7782592-8 (Version None)
Quarter: 2011Q3

REPORT INFORMATION
  Report Type: 
  Country: None (occurrence: None)
  Receive Date: 20110927
  Receipt Date: 20110927
  Transmission Date: 20111222
  Serious: Yes (Hospitalization)
  Sender: FDA-Public Use
  Company Number: None

PATIENT
  Age: 61 Year
  Sex: Male

DRUGS (2)
  1. ARGINMAX [Suspect]
     Indication: ERECTILE DYSFUNCTION
     Dates: start: 20110902
  2. PLACEBO [Suspect]

REACTIONS (1)
  - HAEMOPTYSIS [None]
